FAERS Safety Report 8536387-8 (Version None)
Quarter: 2012Q3

REPORT INFORMATION
  Report Type: 
  Country: None (occurrence: None)
  Receive Date: 20120725
  Receipt Date: 20120711
  Transmission Date: 20120928
  Serious: Yes (Life-Threatening, Disabling, Other)
  Sender: FDA-Public Use
  Company Number: GB-MYLANLABS-2012S1014042

PATIENT
  Age: 31 Year
  Sex: Female
  Weight: 74.4 kg

DRUGS (3)
  1. VENLAFAXINE HYDROCHOLRIDE [Suspect]
     Indication: DEPRESSION
     Route: 048
  2. PROPRANOLOL [Concomitant]
     Indication: PRODUCT USED FOR UNKNOWN INDICATION
  3. VENLAFAXINE HYDROCHOLRIDE [Suspect]
     Indication: ANXIETY
     Route: 048

REACTIONS (8)
  - CONDITION AGGRAVATED [None]
  - SUICIDAL IDEATION [None]
  - INSOMNIA [None]
  - INTENTIONAL SELF-INJURY [None]
  - DEPRESSION [None]
  - APATHY [None]
  - RESTLESS LEGS SYNDROME [None]
  - CONFUSIONAL STATE [None]
